FAERS Safety Report 20802359 (Version 1)
Quarter: 2022Q2

REPORT INFORMATION
  Report Type: Spontaneous
  Country: US (occurrence: None)
  Receive Date: 20220507
  Receipt Date: 20220507
  Transmission Date: 20220721
  Serious: Yes (Death)
  Sender: FDA-Public Use
  Company Number: None

PATIENT
  Age: 83 Year
  Sex: Male

DRUGS (1)
  1. REVLIMID [Suspect]
     Active Substance: LENALIDOMIDE
     Indication: Plasma cell myeloma
     Dosage: OTHER FREQUENCY : QDX21/28D;?
     Route: 048
     Dates: start: 20211126, end: 20220118

REACTIONS (3)
  - COVID-19 pneumonia [None]
  - Acute respiratory failure [None]
  - Breakthrough COVID-19 [None]

NARRATIVE: CASE EVENT DATE: 20220123
